FAERS Safety Report 6527332-5 (Version None)
Quarter: 2010Q1

REPORT INFORMATION
  Report Type: 
  Country: None (occurrence: None)
  Receive Date: 20100104
  Receipt Date: 20100104
  Transmission Date: 20100710
  Serious: No
  Sender: FDA-Public Use
  Company Number: None

PATIENT
  Sex: Female
  Weight: 74.3899 kg

DRUGS (3)
  1. AROMASIN 25MG PHARMACIA + UPJOHN GROUP [Suspect]
     Indication: BREAST CANCER
     Dates: start: 20041201, end: 20091129
  2. TAMOXIFEN CITRATE [Suspect]
     Dates: start: 20031201, end: 20041201
  3. ANTII DEPRESENT MEICATION [Concomitant]

REACTIONS (5)
  - ARTHRALGIA [None]
  - DYSSTASIA [None]
  - OSTEOPOROSIS [None]
  - PAIN [None]
  - WEIGHT INCREASED [None]
